FAERS Safety Report 4523095-3 (Version None)
Quarter: 2004Q4

REPORT INFORMATION
  Report Type: 
  Country: None (occurrence: None)
  Receive Date: 20041208
  Receipt Date: 20041117
  Transmission Date: 20050328
  Serious: Yes (Hospitalization)
  Sender: FDA-Public Use
  Company Number: 2004077590

PATIENT
  Age: 73 Year
  Sex: Male

DRUGS (6)
  1. CARDURA XL [Suspect]
     Indication: BENIGN PROSTATIC HYPERPLASIA
     Dosage: 4 MG (4 MG, 1 IN 1 D), ORAL
     Route: 048
     Dates: start: 20030201, end: 20040410
  2. ALL OTHER THERAPEUTIC PRODUCTS (ALL OTHER THERAPEUTIC PRODUCTS) [Suspect]
     Indication: ILL-DEFINED DISORDER
  3. CANDESARTAN CILEXETIL (CANDESARTAN CILEXETIL) [Concomitant]
  4. HYDERGIN ^SANDOZ^ (DIHYDROERGOCORNINE MESILATE, DIHYDROERGOCRISTINE ME [Concomitant]
  5. VALSARTAN (VALSARTAN) [Concomitant]
  6. DILTIAZEM HYDROCHLORIDE [Concomitant]

REACTIONS (3)
  - HYPERTENSIVE CRISIS [None]
  - LABYRINTHITIS [None]
  - LOSS OF CONSCIOUSNESS [None]
